FAERS Safety Report 9182321 (Version 1)
Quarter: 2012Q4

REPORT INFORMATION
  Report Type: Report from Study
  Country: JP (occurrence: JP)
  Receive Date: 20121030
  Receipt Date: 20121030
  Transmission Date: 20130627
  Serious: Yes (Other)
  Sender: FDA-Public Use
  Company Number: JP-VERTEX PHARMACEUTICAL INC.-2012-023686

PATIENT
  Age: 64 Year
  Sex: Male

DRUGS (7)
  1. VX-950 [Suspect]
     Indication: HEPATITIS C
     Dosage: 1500 mg, qd
     Route: 048
     Dates: start: 20120428, end: 20120622
  2. RIBAVIRIN [Suspect]
     Indication: HEPATITIS C
     Dosage: 800 mg, qd
     Route: 048
     Dates: start: 20120428, end: 20120511
  3. RIBAVIRIN [Suspect]
     Dosage: 600 mg, qd
     Route: 048
     Dates: start: 20120512, end: 20120524
  4. RIBAVIRIN [Suspect]
     Dosage: 400 mg, qd
     Route: 048
     Dates: start: 20120525, end: 20120824
  5. PEGINTERFERON ALFA-2B [Suspect]
     Indication: HEPATITIS C
     Dosage: 100 �g, qw
     Route: 058
     Dates: start: 20120428, end: 20120824
  6. LOXONIN [Concomitant]
     Dosage: 60 mg, prn
     Route: 048
     Dates: end: 20120824
  7. MUCOSTA [Concomitant]
     Dosage: 100 mg, prn
     Route: 048
     Dates: end: 20120824

REACTIONS (1)
  - White blood cell count decreased [Not Recovered/Not Resolved]
